FAERS Safety Report 14862753 (Version 1)
Quarter: 2018Q2

REPORT INFORMATION
  Report Type: Spontaneous
  Country: US (occurrence: US)
  Receive Date: 20180508
  Receipt Date: 20180508
  Transmission Date: 20180711
  Serious: No
  Sender: FDA-Public Use
  Company Number: US-TARO-2018TAR00232

PATIENT
  Age: 47 Year
  Sex: Female
  Weight: 86.17 kg

DRUGS (2)
  1. CARBAMAZEPINE EXTENDED RELEASE TABLETS USP 200MG [Suspect]
     Active Substance: CARBAMAZEPINE
     Indication: NERVOUS SYSTEM DISORDER
     Dosage: 200 MG, 1X/DAY
     Route: 048
     Dates: start: 20180216, end: 20180313
  2. AMLODIPINE (ZYDUS) [Suspect]
     Active Substance: AMLODIPINE BESYLATE
     Dosage: 5 MG, 1X/DAY

REACTIONS (14)
  - Tremor [Recovering/Resolving]
  - Dizziness [Recovering/Resolving]
  - Eye movement disorder [Recovered/Resolved]
  - Blood pressure increased [Recovering/Resolving]
  - Abnormal sensation in eye [Recovered/Resolved]
  - Disorientation [Recovering/Resolving]
  - Feeling abnormal [Recovered/Resolved]
  - Vision blurred [Recovered/Resolved]
  - Headache [Recovering/Resolving]
  - Dysgeusia [Recovered/Resolved]
  - Drug level increased [Recovering/Resolving]
  - Drug interaction [Recovered/Resolved]
  - Balance disorder [Recovering/Resolving]
  - Fatigue [Recovering/Resolving]

NARRATIVE: CASE EVENT DATE: 2018
